FAERS Safety Report 8601213-5 (Version None)
Quarter: 2012Q3

REPORT INFORMATION
  Report Type: 
  Country: None (occurrence: None)
  Receive Date: 20120817
  Receipt Date: 20120813
  Transmission Date: 20120928
  Serious: Yes (Life-Threatening, Other)
  Sender: FDA-Public Use
  Company Number: PHHY2012CH059530

PATIENT
  Sex: Female
  Weight: 51 kg

DRUGS (3)
  1. EXJADE [Suspect]
     Indication: HAEMOSIDEROSIS
     Dosage: 3 DF, DAILY
     Route: 048
     Dates: start: 20111028
  2. EXJADE [Suspect]
     Dosage: 30 MG/KG, DAILY
  3. PANTOPRAZOLE [Concomitant]
     Indication: DYSPEPSIA
     Dosage: UNK UKN, DAILY
     Route: 048
     Dates: start: 20120521

REACTIONS (7)
  - METABOLIC ACIDOSIS [None]
  - VOMITING [None]
  - DYSPEPSIA [None]
  - BACK PAIN [None]
  - ABDOMINAL PAIN LOWER [None]
  - NAUSEA [None]
  - FLANK PAIN [None]
